FAERS Safety Report 6211316-0 (Version None)
Quarter: 2009Q2

REPORT INFORMATION
  Report Type: 
  Country: None (occurrence: None)
  Receive Date: 20090520
  Receipt Date: 20090512
  Transmission Date: 20091009
  Serious: Yes (Life-Threatening, Other)
  Sender: FDA-Public Use
  Company Number: ADR1752009 (BFARM REF NO.: DE-BFARM-09054561)

PATIENT
  Age: 70 Year
  Sex: Female

DRUGS (4)
  1. METFORMIN HCL [Suspect]
     Dosage: 2.5 DOSAGES PER DAY
  2. BISOPROLOL 5 [Concomitant]
  3. BROMAZEPAM [Concomitant]
  4. CITALOPRAM 10 [Concomitant]

REACTIONS (3)
  - DEHYDRATION [None]
  - LACTIC ACIDOSIS [None]
  - RENAL FAILURE ACUTE [None]
